FAERS Safety Report 7917472-8 (Version None)
Quarter: 2011Q4

REPORT INFORMATION
  Report Type: 
  Country: None (occurrence: None)
  Receive Date: 20111116
  Receipt Date: 20110807
  Transmission Date: 20120403
  Serious: No
  Sender: FDA-Public Use
  Company Number: US-BAYER-2011-072683

PATIENT
  Sex: Female

DRUGS (6)
  1. ALEVE (CAPLET) [Suspect]
     Indication: ABDOMINAL PAIN
  2. ALEVE (CAPLET) [Suspect]
     Indication: DYSMENORRHOEA
  3. ALEVE (CAPLET) [Suspect]
     Indication: BACK PAIN
  4. ALEVE (CAPLET) [Suspect]
     Indication: HEADACHE
  5. ALEVE (CAPLET) [Suspect]
     Indication: FATIGUE
  6. ALEVE (CAPLET) [Suspect]
     Indication: ABDOMINAL DISTENSION

REACTIONS (1)
  - DYSMENORRHOEA [None]
